FAERS Safety Report 15902472 (Version 4)
Quarter: 2021Q1

REPORT INFORMATION
  Report Type: Spontaneous
  Country: US (occurrence: US)
  Receive Date: 20190201
  Receipt Date: 20210216
  Transmission Date: 20210419
  Serious: Yes (Other)
  Sender: FDA-Public Use
  Company Number: US-GLAXOSMITHKLINE-US2019013666

PATIENT
  Sex: Male

DRUGS (15)
  1. VENTOLIN HFA [Suspect]
     Active Substance: ALBUTEROL SULFATE
     Indication: PRODUCT USED FOR UNKNOWN INDICATION
     Dosage: UNK
  2. VENTOLIN HFA [Suspect]
     Active Substance: ALBUTEROL SULFATE
  3. VENTOLIN HFA [Suspect]
     Active Substance: ALBUTEROL SULFATE
  4. VENTOLIN HFA [Suspect]
     Active Substance: ALBUTEROL SULFATE
  5. VENTOLIN HFA [Suspect]
     Active Substance: ALBUTEROL SULFATE
     Indication: PRODUCT USED FOR UNKNOWN INDICATION
     Dosage: UNK
  6. VENTOLIN HFA [Suspect]
     Active Substance: ALBUTEROL SULFATE
     Indication: PRODUCT USED FOR UNKNOWN INDICATION
     Dosage: UNK
  7. VENTOLIN HFA [Suspect]
     Active Substance: ALBUTEROL SULFATE
  8. VENTOLIN HFA [Suspect]
     Active Substance: ALBUTEROL SULFATE
     Indication: PRODUCT USED FOR UNKNOWN INDICATION
     Dosage: UNK
     Route: 065
  9. VENTOLIN HFA [Suspect]
     Active Substance: ALBUTEROL SULFATE
     Indication: PRODUCT USED FOR UNKNOWN INDICATION
     Dosage: UNK
  10. VENTOLIN HFA [Suspect]
     Active Substance: ALBUTEROL SULFATE
  11. VENTOLIN HFA [Suspect]
     Active Substance: ALBUTEROL SULFATE
  12. VENTOLIN HFA [Suspect]
     Active Substance: ALBUTEROL SULFATE
  13. VENTOLIN HFA [Suspect]
     Active Substance: ALBUTEROL SULFATE
  14. VENTOLIN HFA [Suspect]
     Active Substance: ALBUTEROL SULFATE
  15. VENTOLIN HFA [Suspect]
     Active Substance: ALBUTEROL SULFATE

REACTIONS (5)
  - Wrong technique in product usage process [Unknown]
  - Product storage error [Unknown]
  - Dementia [Unknown]
  - Disability [Unknown]
  - Product dose omission issue [Unknown]
